FAERS Safety Report 15112195 (Version 1)
Quarter: 2018Q3

REPORT INFORMATION
  Report Type: Spontaneous
  Country: FR (occurrence: FR)
  Receive Date: 20180705
  Receipt Date: 20180705
  Transmission Date: 20181010
  Serious: Yes (Hospitalization)
  Sender: FDA-Public Use
  Company Number: FR-B. BRAUN MEDICAL INC.-2051482

PATIENT
  Age: 74 Year
  Sex: Male
  Weight: 88 kg

DRUGS (1)
  1. SODIUM CHLORIDE INJECTIONS USP 0264?7800?00 0264?7800?10 [Suspect]
     Active Substance: SODIUM CHLORIDE
     Indication: FLUID REPLACEMENT
     Route: 042

REACTIONS (1)
  - Electrolyte imbalance [Recovered/Resolved]
